FAERS Safety Report 10705400 (Version 2)
Quarter: 2015Q1

REPORT INFORMATION
  Report Type: Spontaneous
  Country: US (occurrence: US)
  Receive Date: 20150112
  Receipt Date: 20150112
  Transmission Date: 20150721
  Serious: No
  Sender: FDA-Public Use
  Company Number: US-GLAXOSMITHKLINE-A1056415A

PATIENT

DRUGS (7)
  1. PROMACTA [Suspect]
     Active Substance: ELTROMBOPAG OLAMINE
     Indication: IMMUNE THROMBOCYTOPENIC PURPURA
     Dosage: 50 MG, UNKNOWN DOSING
     Route: 065
     Dates: start: 20131221, end: 20140106
  2. PEGINTRON [Suspect]
     Active Substance: PEGINTERFERON ALFA-2B
     Indication: TREATMENT FAILURE
     Dosage: 180 MCG90 MCG
     Route: 058
     Dates: start: 20130814, end: 20140106
  3. RIBAVIRIN TABLET [Suspect]
     Active Substance: RIBAVIRIN
     Indication: TREATMENT FAILURE
     Route: 048
     Dates: start: 20130814, end: 20140106
  4. VICTRELIS [Suspect]
     Active Substance: BOCEPREVIR
     Indication: TREATMENT FAILURE
     Dosage: 800 MG THREE TIMES PER DAY, TOTAL DAILY DOSE OF 2400 MG
     Route: 048
     Dates: start: 20130911, end: 20140106
  5. SOFOSBUVIR [Suspect]
     Active Substance: SOFOSBUVIR
     Indication: PRODUCT USED FOR UNKNOWN INDICATION
     Route: 065
  6. PEGASYS [Suspect]
     Active Substance: PEGINTERFERON ALFA-2A
     Indication: PRODUCT USED FOR UNKNOWN INDICATION
     Route: 065
  7. UNKNOWN [Concomitant]
     Active Substance: UNSPECIFIED INGREDIENT

REACTIONS (5)
  - Thrombocytopenia [None]
  - Viral load increased [Not Recovered/Not Resolved]
  - Anaemia [None]
  - Treatment failure [Not Recovered/Not Resolved]
  - Neutropenia [None]
